FAERS Safety Report 16002229 (Version 1)
Quarter: 2019Q1

REPORT INFORMATION
  Report Type: Spontaneous
  Country: US (occurrence: US)
  Receive Date: 20190225
  Receipt Date: 20190225
  Transmission Date: 20190418
  Serious: No
  Sender: FDA-Public Use
  Company Number: US-IGSA-SR10006510

PATIENT
  Age: 60 Year
  Sex: Female
  Weight: 78 kg

DRUGS (9)
  1. ANTIBIOTICS [Concomitant]
     Active Substance: UNSPECIFIED INGREDIENT
     Indication: NASAL CONGESTION
  2. ALBUTEROL SULFATE. [Concomitant]
     Active Substance: ALBUTEROL SULFATE
  3. PROLASTIN-C [Suspect]
     Active Substance: .ALPHA.1-PROTEINASE INHIBITOR HUMAN
     Indication: ALPHA-1 ANTI-TRYPSIN DEFICIENCY
     Dosage: 4680 MG, Q.WK.
     Route: 042
     Dates: start: 20170428, end: 201806
  4. BROVANA [Concomitant]
     Active Substance: ARFORMOTEROL TARTRATE
  5. HYDROCHLOROTHIAZIDE. [Concomitant]
     Active Substance: HYDROCHLOROTHIAZIDE
  6. BUDESONIDE. [Concomitant]
     Active Substance: BUDESONIDE
  7. MELOXICAM. [Concomitant]
     Active Substance: MELOXICAM
  8. XANAX [Concomitant]
     Active Substance: ALPRAZOLAM
  9. STIOLTO RESPIMAT [Concomitant]
     Active Substance: OLODATEROL HYDROCHLORIDE\TIOTROPIUM BROMIDE MONOHYDRATE

REACTIONS (1)
  - Headache [Recovered/Resolved]

NARRATIVE: CASE EVENT DATE: 20171001
